FAERS Safety Report 9874209 (Version 1)
Quarter: 2014Q1

REPORT INFORMATION
  Report Type: Other
  Country: US (occurrence: US)
  Receive Date: 20140206
  Receipt Date: 20140206
  Transmission Date: 20141002
  Serious: No
  Sender: FDA-Public Use
  Company Number: US-ACORDA-ACO_35189_2013

PATIENT
  Sex: 0

DRUGS (4)
  1. AMPYRA [Suspect]
     Indication: GAIT DISTURBANCE
     Dosage: 10 MG, QD
     Route: 048
     Dates: start: 20130320, end: 20130323
  2. AMPYRA [Suspect]
     Dosage: 10 MG, BID
     Route: 048
     Dates: start: 20130324
  3. TYSABRI [Concomitant]
     Indication: PRODUCT USED FOR UNKNOWN INDICATION
     Dosage: UNK
     Dates: start: 200712
  4. CONTRACEPTIVES [Concomitant]
     Indication: CONTRACEPTION
     Dosage: UNK
     Dates: start: 1998

REACTIONS (2)
  - Paraesthesia [Unknown]
  - Medication error [Unknown]
